FAERS Safety Report 7084579-X (Version None)
Quarter: 2010Q4

REPORT INFORMATION
  Report Type: 
  Country: None (occurrence: None)
  Receive Date: 20101104
  Receipt Date: 20101021
  Transmission Date: 20110411
  Serious: Yes (Hospitalization)
  Sender: FDA-Public Use
  Company Number: NL-AMGEN-NLDSP2010001589

PATIENT

DRUGS (6)
  1. ENBREL [Suspect]
     Indication: PSORIATIC ARTHROPATHY
     Route: 058
  2. METOPROLOL [Concomitant]
  3. SIMVASTATIN [Concomitant]
     Indication: HYPERCHOLESTEROLAEMIA
  4. ISOSORBIDE DINITRATE [Concomitant]
     Indication: VASODILATION PROCEDURE
     Dosage: 5 MG WHEN NECESSARY
  5. PLAVIX [Concomitant]
     Indication: ANTICOAGULANT THERAPY
  6. CARBASALATE [Concomitant]
     Indication: ANTICOAGULANT THERAPY

REACTIONS (1)
  - ANGINA PECTORIS [None]
